FAERS Safety Report 23234152 (Version 2)
Quarter: 2023Q4

REPORT INFORMATION
  Report Type: Spontaneous
  Country: US (occurrence: US)
  Receive Date: 20231128
  Receipt Date: 20231204
  Transmission Date: 20240109
  Serious: Yes (Death, Other)
  Sender: FDA-Public Use
  Company Number: US-JNJFOC-20231170758

PATIENT

DRUGS (2)
  1. RILPIVIRINE [Suspect]
     Active Substance: RILPIVIRINE
     Indication: HIV infection
     Route: 030
  2. CABOTEGRAVIR [Suspect]
     Active Substance: CABOTEGRAVIR
     Indication: HIV infection
     Route: 030

REACTIONS (6)
  - Death [Fatal]
  - Virologic failure [Unknown]
  - Adverse event [Unknown]
  - Viraemia [Unknown]
  - Injection site reaction [Unknown]
  - Adverse drug reaction [Unknown]
